FAERS Safety Report 22936096 (Version 4)
Quarter: 2023Q4

REPORT INFORMATION
  Report Type: Report from Study
  Country: CH (occurrence: CH)
  Receive Date: 20230912
  Receipt Date: 20231023
  Transmission Date: 20240110
  Serious: Yes (Hospitalization)
  Sender: FDA-Public Use
  Company Number: CH-ABBVIE-5401761

PATIENT
  Sex: Female

DRUGS (7)
  1. CARBIDOPA\LEVODOPA [Suspect]
     Active Substance: CARBIDOPA\LEVODOPA
     Indication: Parkinson^s disease
     Dosage: MD: 4.0ML, CRD: 2.4ML, ED: 1.0 ML;?FREQUENCY TEXT: 16H THERAPY
     Route: 050
     Dates: start: 20230503, end: 20230505
  2. CARBIDOPA\LEVODOPA [Suspect]
     Active Substance: CARBIDOPA\LEVODOPA
     Dosage: MD: 7.0ML, CRD: 2.7ML, ED: 1.0 ML;?FREQUENCY TEXT: 16H THERAPY
     Route: 050
     Dates: start: 20230509, end: 20230908
  3. CARBIDOPA\LEVODOPA [Suspect]
     Active Substance: CARBIDOPA\LEVODOPA
     Dosage: MD: 7.0ML, CRD: 2.5ML, ED: 1.0 ML;?FREQUENCY TEXT: 16H THERAPY
     Route: 050
     Dates: start: 20230505, end: 20230509
  4. CARBIDOPA\LEVODOPA [Suspect]
     Active Substance: CARBIDOPA\LEVODOPA
     Dosage: FREQUENCY TEXT: 16H THERAPY
     Route: 050
     Dates: start: 20230502, end: 20230502
  5. CARBIDOPA\LEVODOPA [Suspect]
     Active Substance: CARBIDOPA\LEVODOPA
     Dosage: MD: 4.0ML, CRD: 1.4ML, ED: 1.0 ML;?FREQUENCY TEXT: 16H THERAPY
     Route: 050
     Dates: start: 20230502, end: 20230503
  6. CARBIDOPA\LEVODOPA [Suspect]
     Active Substance: CARBIDOPA\LEVODOPA
     Dosage: MD: 7.0ML, CRD: 2.7ML, ED: 1.0 ML;?FREQUENCY TEXT: 16H THERAPY
     Route: 050
     Dates: start: 20230914
  7. CARBIDOPA\LEVODOPA [Suspect]
     Active Substance: CARBIDOPA\LEVODOPA
     Dosage: MD: 7.5ML, CRD: 2.7ML, ED: 1.0 ML;?FREQUENCY TEXT: 16H THERAPY
     Route: 050
     Dates: start: 20230908, end: 20230914

REACTIONS (7)
  - Urinary tract infection [Recovered/Resolved]
  - Asthenia [Not Recovered/Not Resolved]
  - Dyskinesia [Not Recovered/Not Resolved]
  - Device issue [Recovered/Resolved]
  - Akinesia [Unknown]
  - Cystitis [Not Recovered/Not Resolved]
  - Rehabilitation therapy [Recovered/Resolved]

NARRATIVE: CASE EVENT DATE: 20230101
